FAERS Safety Report 20000105 (Version 1)
Quarter: 2021Q4

REPORT INFORMATION
  Report Type: Spontaneous
  Country: ES (occurrence: ES)
  Receive Date: 20211026
  Receipt Date: 20211026
  Transmission Date: 20220303
  Serious: Yes (Other)
  Sender: FDA-Public Use
  Company Number: ES-PFIZER INC-202101381307

PATIENT
  Age: 64 Year
  Sex: Female

DRUGS (2)
  1. VARENICLINE TARTRATE [Suspect]
     Active Substance: VARENICLINE TARTRATE
     Dosage: UNK
  2. VARENICLINE TARTRATE [Suspect]
     Active Substance: VARENICLINE TARTRATE
     Dosage: UNK

REACTIONS (7)
  - Hepatitis B [Unknown]
  - Endometriosis [Unknown]
  - Monoplegia [Unknown]
  - Colon neoplasm [Unknown]
  - Swelling face [Unknown]
  - Alopecia [Unknown]
  - Nervousness [Unknown]
